FAERS Safety Report 8553752-3 (Version None)
Quarter: 2012Q3

REPORT INFORMATION
  Report Type: 
  Country: None (occurrence: None)
  Receive Date: 20120731
  Receipt Date: 20120722
  Transmission Date: 20120928
  Serious: Yes (Hospitalization)
  Sender: FDA-Public Use
  Company Number: CA-GLAXOSMITHKLINE-A0985947A

PATIENT
  Sex: Female
  Weight: 60.5 kg

DRUGS (2)
  1. FLOLAN [Suspect]
     Indication: PULMONARY HYPERTENSION
     Dosage: 1.5MG CONTINUOUS
     Route: 042
     Dates: start: 20120510, end: 20120101
  2. FLOLAN [Suspect]
     Indication: PULMONARY HYPERTENSION
     Route: 042
     Dates: start: 20120510, end: 20120101

REACTIONS (1)
  - TRANSPLANT [None]
